FAERS Safety Report 6042444-0 (Version None)
Quarter: 2009Q1

REPORT INFORMATION
  Report Type: 
  Country: None (occurrence: None)
  Receive Date: 20090116
  Receipt Date: 20090115
  Transmission Date: 20090719
  Serious: Yes (Hospitalization)
  Sender: FDA-Public Use
  Company Number: US-B.I. PHARMACEUTICALS,INC./RIDGEFIELD-2008-BP-18928BP

PATIENT
  Sex: Female

DRUGS (17)
  1. SPIRIVA [Suspect]
     Indication: CHRONIC OBSTRUCTIVE PULMONARY DISEASE
     Dosage: 18MCG
     Route: 055
     Dates: start: 20081001
  2. SPIRIVA [Suspect]
     Indication: LUNG DISORDER
  3. PLAVIX [Concomitant]
     Indication: CEREBROVASCULAR ACCIDENT
  4. PREDNISONE [Concomitant]
     Indication: ASTHMA
  5. SINGULAIR [Concomitant]
     Indication: ASTHMA
  6. ALTACE [Concomitant]
  7. LIPITOR [Concomitant]
     Indication: BLOOD CHOLESTEROL INCREASED
  8. NORVASC [Concomitant]
     Indication: HYPERTENSION
  9. BUSPIRONE HCL [Concomitant]
     Indication: ANXIETY
  10. ALBUTEROL [Concomitant]
  11. FORADIL [Concomitant]
     Indication: ASTHMA
  12. FLOVENT [Concomitant]
     Indication: ASTHMA
  13. ASTERLIN NASAL SPRAY [Concomitant]
     Indication: HYPERSENSITIVITY
  14. FLUTICASONE PROPANIATE NASAL SPRAY [Concomitant]
     Indication: HYPERSENSITIVITY
  15. BONIVA [Concomitant]
     Indication: OSTEOPOROSIS
  16. ALBUTEROL SULFATE [Concomitant]
  17. IPRATROPIUM BROMIDE [Concomitant]

REACTIONS (3)
  - DYSPHAGIA [None]
  - MYOCARDIAL INFARCTION [None]
  - OROPHARYNGEAL PAIN [None]
